FAERS Safety Report 6125489-1 (Version None)
Quarter: 2009Q1

REPORT INFORMATION
  Report Type: 
  Country: None (occurrence: None)
  Receive Date: 20090319
  Receipt Date: 20090319
  Transmission Date: 20090719
  Serious: Yes (Other)
  Sender: FDA-Public Use
  Company Number: None

PATIENT
  Sex: Male
  Weight: 77 kg

DRUGS (1)
  1. TACROLIMUS [Suspect]
     Dosage: 2MG Q12H PO
     Route: 048

REACTIONS (2)
  - HEADACHE [None]
  - VISION BLURRED [None]
